FAERS Safety Report 4274963-1 (Version None)
Quarter: 2004Q1

REPORT INFORMATION
  Report Type: 
  Country: None (occurrence: None)
  Receive Date: 20040120
  Receipt Date: 20040106
  Transmission Date: 20041129
  Serious: Yes (Hospitalization)
  Sender: FDA-Public Use
  Company Number: FLUV00304000006

PATIENT
  Age: 72 Year
  Sex: Male
  Weight: 73 kg

DRUGS (19)
  1. LUVOX [Suspect]
     Indication: DEPRESSION
     Dosage: 50 MG DAILY PO
     Route: 048
     Dates: start: 20020101, end: 20031122
  2. CELESTAMINE TAB [Suspect]
     Indication: COUGH
     Dosage: 0.25 MG DAILY PO
     Route: 048
     Dates: start: 20030819
  3. GLIVEC (MATINIB MESILATE) [Concomitant]
  4. TICLOPIDINE HCL [Concomitant]
  5. TENORMIN [Concomitant]
  6. ADALAT [Concomitant]
  7. NITOROL R (ISOSORBIDE DINITRATE) [Concomitant]
  8. GASMOTIN (MOSAPRIDE CITRATE) [Concomitant]
  9. GASMOTIN (MOSAPRIDE CITRATE) [Concomitant]
  10. LIPITOR [Concomitant]
  11. ALLOPURINOL [Concomitant]
  12. DIAZEPAM [Concomitant]
  13. ZOLPIDEM TARTRATE [Concomitant]
  14. DASEN (SERRAPEPTASE) [Concomitant]
  15. SELEBEX (TEPRENONE) [Concomitant]
  16. LENDORM [Concomitant]
  17. LEVOFLOXACIN [Concomitant]
  18. HUSTAZOL (CLOPERASTINE HYDROCHLORIDE) [Concomitant]
  19. RIZE (CLOTIAZEPAM) [Concomitant]

REACTIONS (16)
  - ANOREXIA [None]
  - CHEST DISCOMFORT [None]
  - FACE OEDEMA [None]
  - HAEMATOCRIT DECREASED [None]
  - HAEMOGLOBIN DECREASED [None]
  - HYPERSTHENURIA [None]
  - HYPOKALAEMIA [None]
  - HYPONATRAEMIA [None]
  - INAPPROPRIATE ANTIDIURETIC HORMONE SECRETION [None]
  - MALAISE [None]
  - METABOLIC ALKALOSIS [None]
  - NASOPHARYNGITIS [None]
  - PALPITATIONS [None]
  - POLYURIA [None]
  - PYREXIA [None]
  - VENTRICULAR EXTRASYSTOLES [None]
